FAERS Safety Report 16273662 (Version 23)
Quarter: 2021Q2

REPORT INFORMATION
  Report Type: Report from Study
  Country: None (occurrence: IL)
  Receive Date: 20190506
  Receipt Date: 20210621
  Transmission Date: 20210716
  Serious: Yes (Hospitalization, Other)
  Sender: FDA-Public Use
  Company Number: IL-ABBVIE-19K-082-2735071-00

PATIENT
  Age: 67 Year
  Sex: Male
  Weight: 73 kg

DRUGS (39)
  1. VENCLEXTA [Suspect]
     Active Substance: VENETOCLAX
     Dosage: DOSE DECREASED
     Route: 048
     Dates: start: 20200506, end: 20201201
  2. COLCHICINE. [Concomitant]
     Active Substance: COLCHICINE
     Indication: FAMILIAL MEDITERRANEAN FEVER
     Dates: start: 20190530
  3. BISOPROLOL [Concomitant]
     Active Substance: BISOPROLOL
     Indication: HYPERTENSION
     Dates: start: 20180123, end: 20190606
  4. ACYCLOVIR. [Concomitant]
     Active Substance: ACYCLOVIR
     Indication: HERPES ZOSTER
     Route: 065
     Dates: start: 20181227
  5. CILAZAPRIL [Concomitant]
     Active Substance: CILAZAPRIL ANHYDROUS
     Indication: HYPERLIPIDAEMIA
     Route: 065
     Dates: start: 20081130, end: 20201017
  6. VENCLEXTA [Suspect]
     Active Substance: VENETOCLAX
     Dosage: DOSE INCREASE ACCORDING TO VENETOCLAX DOSE TITRATION SCHEME
     Route: 048
     Dates: start: 20190401, end: 20190407
  7. RITUXIMAB. [Suspect]
     Active Substance: RITUXIMAB
     Dosage: CYCLE 3
     Route: 065
     Dates: start: 20190819, end: 20190819
  8. SOTALOL. [Concomitant]
     Active Substance: SOTALOL
     Indication: HYPERTENSION
  9. ISOKET [Concomitant]
     Active Substance: ISOSORBIDE DINITRATE
     Indication: CARDIAC FIBRILLATION
     Dosage: SPRAY
     Dates: start: 2017
  10. CITALOPRAM [Concomitant]
     Active Substance: CITALOPRAM HYDROBROMIDE
     Indication: PROPHYLAXIS
     Route: 065
     Dates: start: 20081103
  11. VENCLEXTA [Suspect]
     Active Substance: VENETOCLAX
     Dosage: INTERRUPTION DUE TO AN ADVERSE EVENT
     Route: 048
     Dates: start: 20190408, end: 20190421
  12. SOTALOL. [Concomitant]
     Active Substance: SOTALOL
     Indication: CARDIAC DISORDER
     Dates: start: 20190606
  13. CITALOPRAM [Concomitant]
     Active Substance: CITALOPRAM HYDROBROMIDE
     Indication: PROPHYLAXIS
     Dates: start: 20161117
  14. CILAZAPRIL [Concomitant]
     Active Substance: CILAZAPRIL ANHYDROUS
     Indication: HYPERLIPIDAEMIA
     Dates: start: 20050515
  15. RITUXIMAB. [Suspect]
     Active Substance: RITUXIMAB
     Dosage: CYCLE 2
     Route: 065
     Dates: start: 20190722, end: 20190722
  16. NERVEN [Concomitant]
     Indication: STRESS
     Route: 065
  17. VENCLEXTA [Suspect]
     Active Substance: VENETOCLAX
     Dosage: DOSE INCREASE ACCORDING TO VENETOCLAX DOSE TITRATION SCHEME
     Route: 048
     Dates: start: 20190311, end: 20190317
  18. VENCLEXTA [Suspect]
     Active Substance: VENETOCLAX
     Dosage: MODIFICATION TO THE DAILY DOSE DUE TO AN ADVERSE EVENT
     Route: 048
     Dates: start: 20190606, end: 20190615
  19. RITUXIMAB. [Suspect]
     Active Substance: RITUXIMAB
     Dosage: CYCLE 6
     Route: 065
     Dates: start: 20191111, end: 20191111
  20. NEUPOGEN [Concomitant]
     Active Substance: FILGRASTIM
     Indication: NEUTROPENIA
     Dates: start: 20190729
  21. VECTOR PLUS [Concomitant]
     Indication: HYPERTENSION
     Route: 065
     Dates: start: 20200305, end: 20200402
  22. SYMBICORT [Concomitant]
     Active Substance: BUDESONIDE\FORMOTEROL FUMARATE DIHYDRATE
     Indication: RESPIRATORY DISORDER PROPHYLAXIS
     Route: 065
     Dates: start: 20150114, end: 20200216
  23. VENCLEXTA [Suspect]
     Active Substance: VENETOCLAX
     Dosage: DOSE INCREASE ACCORDING TO VENETOCLAX DOSE TITRATION SCHEME
     Route: 048
     Dates: start: 20190318, end: 20190331
  24. VENCLEXTA [Suspect]
     Active Substance: VENETOCLAX
     Dosage: MODIFICATION TO THE DAILY DOSE.?OTHER?BACK TO DAILY DOSE
     Route: 048
     Dates: start: 20190708, end: 20190915
  25. VENCLEXTA [Suspect]
     Active Substance: VENETOCLAX
     Dosage: TREATMENT COMPLETION
     Route: 048
     Dates: start: 20201217, end: 20210412
  26. RITUXIMAB. [Suspect]
     Active Substance: RITUXIMAB
     Indication: CHRONIC LYMPHOCYTIC LEUKAEMIA
     Dosage: CYCLE NUMBER 1
     Route: 065
     Dates: start: 20190624, end: 20190624
  27. RITUXIMAB. [Suspect]
     Active Substance: RITUXIMAB
     Dosage: CYCLE 5
     Route: 065
     Dates: start: 20191015, end: 20191015
  28. PRALUENT [Concomitant]
     Active Substance: ALIROCUMAB
     Indication: CARDIOVASCULAR DISORDER
     Route: 065
     Dates: start: 20170208
  29. VENCLEXTA [Suspect]
     Active Substance: VENETOCLAX
     Indication: CHRONIC LYMPHOCYTIC LEUKAEMIA
     Dosage: DOSE INCREASE ACCORDING TO VENETOCLAX DOSE TITRATION SCHEME
     Route: 048
     Dates: start: 20190304, end: 20190310
  30. VENCLEXTA [Suspect]
     Active Substance: VENETOCLAX
     Dosage: MODIFICATION TO THE DAILY DOSE DUE TO AN ADVERSE EVENT
     Route: 048
     Dates: start: 20190616, end: 20190707
  31. VENCLEXTA [Suspect]
     Active Substance: VENETOCLAX
     Dosage: DOSE INCREASED
     Route: 048
     Dates: start: 20190916, end: 20200505
  32. LITORVA [Concomitant]
     Active Substance: ATORVASTATIN CALCIUM
     Indication: HYPERLIPIDAEMIA
     Route: 065
     Dates: start: 20101125
  33. TUSSOPHEDRINE NEW FORMULA [Concomitant]
     Indication: COUGH
     Route: 065
     Dates: start: 20200420
  34. IBUFEN D [Concomitant]
     Indication: PAIN
     Route: 048
  35. DOXILIN [Concomitant]
     Active Substance: DOXYCYCLINE HYDROCHLORIDE
     Indication: SKIN WOUND
     Route: 065
     Dates: start: 20200317, end: 20200318
  36. RELAXIN [Concomitant]
     Active Substance: RELAXIN PORCINE
     Indication: STRESS
     Route: 065
  37. VENCLEXTA [Suspect]
     Active Substance: VENETOCLAX
     Dosage: INTERRUPTION DUE TO AN ADVERSE EVENT
     Route: 048
     Dates: start: 20190422, end: 20190605
  38. VENCLEXTA [Suspect]
     Active Substance: VENETOCLAX
     Route: 048
     Dates: start: 20201202, end: 20201216
  39. RITUXIMAB. [Suspect]
     Active Substance: RITUXIMAB
     Dosage: CYCLE 4
     Route: 065
     Dates: start: 20190916, end: 20190916

REACTIONS (28)
  - Viral infection [Recovered/Resolved]
  - Haematoma [Recovered/Resolved]
  - Carotid endarterectomy [Unknown]
  - Neutropenia [Recovered/Resolved]
  - Angiopathy [Recovered/Resolved]
  - Pollakiuria [Recovered/Resolved]
  - Abdominal pain [Unknown]
  - Tumour lysis syndrome [Unknown]
  - Haemoptysis [Recovered/Resolved]
  - Carotid artery stenosis [Recovered/Resolved]
  - Atrial fibrillation [Recovered/Resolved]
  - Diarrhoea [Recovered/Resolved]
  - Diarrhoea [Recovered/Resolved]
  - Neutropenia [Not Recovered/Not Resolved]
  - Dizziness [Recovered/Resolved]
  - Asthenia [Recovered/Resolved]
  - Vomiting [Recovered/Resolved]
  - Muscular weakness [Recovered/Resolved]
  - Neutropenia [Recovered/Resolved]
  - Neutropenia [Recovered/Resolved]
  - Pyrexia [Unknown]
  - Cardiac fibrillation [Recovered/Resolved]
  - Pyrexia [Recovered/Resolved]
  - Leukopenia [Recovered/Resolved]
  - Carotid endarterectomy [Recovered/Resolved]
  - Gout [Recovered/Resolved]
  - Weight decreased [Unknown]
  - Diarrhoea [Recovered/Resolved]

NARRATIVE: CASE EVENT DATE: 2019
